FAERS Safety Report 9217927 (Version 3)
Quarter: 2013Q2

REPORT INFORMATION
  Report Type: Spontaneous
  Country: JP (occurrence: JP)
  Receive Date: 20130408
  Receipt Date: 20130424
  Transmission Date: 20140414
  Serious: Yes (Hospitalization)
  Sender: FDA-Public Use
  Company Number: JP-PFIZER INC-2013109410

PATIENT
  Age: 72 Year
  Sex: Female
  Weight: 49.7 kg

DRUGS (16)
  1. CELECOX [Suspect]
     Indication: BREAST CANCER
     Dosage: 200 MG, DAILY
     Route: 048
     Dates: start: 2007
  2. CARBOPLATIN [Suspect]
     Indication: BREAST CANCER
     Dosage: 425 MG, EVERY 3 WEEKS
     Route: 065
     Dates: start: 20130304
  3. DOCETAXEL [Suspect]
     Indication: BREAST CANCER
     Dosage: 105 MG, EVERY 3 WEEKS
     Route: 065
     Dates: start: 20130304
  4. PERTUZUMAB [Suspect]
     Indication: BREAST CANCER
     Dosage: UNK
     Route: 042
     Dates: start: 20130304
  5. HERCEPTIN [Suspect]
     Indication: BREAST CANCER
     Dosage: 397 MG, EVERY 3 WEEKS
     Route: 041
     Dates: start: 20130304
  6. HERCEPTIN [Suspect]
     Dosage: 6 MG/KG, EVERY 3 WEEKS
     Route: 041
  7. ETHYL ICOSAPENTATE [Concomitant]
     Dosage: UNK
     Route: 048
     Dates: start: 1993
  8. LIMAPROST [Concomitant]
     Dosage: UNK
     Dates: start: 2007
  9. GLICLAZIDE [Concomitant]
     Dosage: UNK
     Dates: start: 1993
  10. GASTER [Concomitant]
     Dosage: UNK
     Dates: start: 1993
  11. AMLODIPINE BESILATE [Concomitant]
     Dosage: UNK
     Route: 048
     Dates: start: 1993
  12. ZETIA [Concomitant]
     Dosage: UNK
     Dates: start: 1993
  13. VALSARTAN [Concomitant]
     Dosage: UNK
     Dates: start: 1993
  14. TOCOPHERYL NICOTINATE [Concomitant]
     Dosage: UNK
     Route: 048
     Dates: start: 1993
  15. VOGLIBOSE [Concomitant]
     Dosage: UNK
     Dates: start: 1993
  16. NEUROTROPIN [Concomitant]
     Dosage: UNK

REACTIONS (2)
  - Off label use [Unknown]
  - Duodenal ulcer perforation [Recovered/Resolved]
